FAERS Safety Report 23615685 (Version 2)
Quarter: 2024Q2

REPORT INFORMATION
  Report Type: Spontaneous
  Country: US (occurrence: US)
  Receive Date: 20240311
  Receipt Date: 20240401
  Transmission Date: 20240715
  Serious: Yes (Other)
  Sender: FDA-Public Use
  Company Number: US-JNJFOC-20240318526

PATIENT
  Age: 54 Year
  Sex: Male

DRUGS (3)
  1. ZYTIGA [Suspect]
     Active Substance: ABIRATERONE ACETATE
     Indication: Product used for unknown indication
     Route: 048
  2. RELUGOLIX [Suspect]
     Active Substance: RELUGOLIX
     Indication: Prostate cancer
     Route: 048
     Dates: start: 20240228, end: 20240228
  3. RELUGOLIX [Suspect]
     Active Substance: RELUGOLIX
     Dosage: QD
     Route: 048
     Dates: start: 20240229

REACTIONS (7)
  - Chronic kidney disease [Unknown]
  - Hepatic enzyme increased [Unknown]
  - Muscular weakness [Unknown]
  - Hypertension [Unknown]
  - Pain [Unknown]
  - Fall [Unknown]
  - Hot flush [Not Recovered/Not Resolved]

NARRATIVE: CASE EVENT DATE: 20240306
